FAERS Safety Report 24275223 (Version 2)
Quarter: 2024Q3

REPORT INFORMATION
  Report Type: Report from Study
  Country: CA (occurrence: CA)
  Receive Date: 20240903
  Receipt Date: 20240923
  Transmission Date: 20241017
  Serious: Yes (Other)
  Sender: ABBVIE
  Company Number: CA-ABBVIE-5902504

PATIENT
  Sex: Female

DRUGS (1)
  1. SKYRIZI [Suspect]
     Active Substance: RISANKIZUMAB-RZAA
     Indication: Psoriasis
     Route: 058
     Dates: start: 20220509, end: 202407

REACTIONS (7)
  - Systemic lupus erythematosus [Unknown]
  - Chest discomfort [Unknown]
  - Dyspnoea [Unknown]
  - Arthralgia [Unknown]
  - Gait disturbance [Unknown]
  - Headache [Unknown]
  - Antinuclear antibody increased [Unknown]
